FAERS Safety Report 7450505-4 (Version None)
Quarter: 2011Q2

REPORT INFORMATION
  Report Type: 
  Country: None (occurrence: None)
  Receive Date: 20110502
  Receipt Date: 20110418
  Transmission Date: 20111010
  Serious: Yes (Other)
  Sender: FDA-Public Use
  Company Number: PHHY2011US32930

PATIENT
  Sex: Female

DRUGS (2)
  1. GENTEAL MODERATE LUBRICANT EYE DROPS [Suspect]
     Dosage: UNK UKN, UNK
  2. RESTASIS [Concomitant]
     Dosage: UNK UKN, UNK

REACTIONS (2)
  - EYE PAIN [None]
  - INCORRECT DOSE ADMINISTERED [None]
